FAERS Safety Report 15434596 (Version 2)
Quarter: 2018Q4

REPORT INFORMATION
  Report Type: Spontaneous
  Country: DE (occurrence: DE)
  Receive Date: 20180927
  Receipt Date: 20181024
  Transmission Date: 20190204
  Serious: Yes (Disabling)
  Sender: FDA-Public Use
  Company Number: PHHY2018DE108709

PATIENT
  Age: 67 Year
  Sex: Male
  Weight: 100 kg

DRUGS (2)
  1. TAMSULOSIN HYDROCHLORIDE. [Suspect]
     Active Substance: TAMSULOSIN HYDROCHLORIDE
     Indication: LOWER URINARY TRACT SYMPTOMS
     Dosage: 0.4 MG, DAILY (PROLONGED-RELEASE CAPSULE)
     Route: 048
  2. TAMSULOSIN HYDROCHLORIDE. [Suspect]
     Active Substance: TAMSULOSIN HYDROCHLORIDE
     Indication: DYSURIA

REACTIONS (4)
  - Urinary tract infection [Recovering/Resolving]
  - Product physical issue [Unknown]
  - Drug ineffective [Recovering/Resolving]
  - Drug dependence [Unknown]
